FAERS Safety Report 8017336-8 (Version None)
Quarter: 2012Q1

REPORT INFORMATION
  Report Type: 
  Country: None (occurrence: None)
  Receive Date: 20120102
  Receipt Date: 20111221
  Transmission Date: 20120608
  Serious: Yes (Hospitalization)
  Sender: FDA-Public Use
  Company Number: JP-ROCHE-1025125

PATIENT
  Age: 56 Year
  Sex: Male
  Weight: 61.7 kg

DRUGS (3)
  1. ASPIRIN [Concomitant]
     Indication: TRANSIENT ISCHAEMIC ATTACK
     Route: 048
  2. LANSOPRAZOLE [Concomitant]
     Route: 048
  3. PEGASYS [Suspect]
     Indication: HEPATITIS C
     Route: 058
     Dates: start: 20110322, end: 20110705

REACTIONS (1)
  - AGRANULOCYTOSIS [None]
